FAERS Safety Report 9849338 (Version 1)
Quarter: 2013Q4

REPORT INFORMATION
  Report Type: Spontaneous
  Country: US (occurrence: None)
  Receive Date: 20131223
  Receipt Date: 20131223
  Transmission Date: 20140711
  Serious: Yes (Hospitalization)
  Sender: FDA-Public Use
  Company Number: CABO-13003294

PATIENT
  Age: 13 Year
  Sex: Female
  Weight: 37.3 kg

DRUGS (7)
  1. COMETRIQ (CABOZANTINIB) CAPSULE [Suspect]
     Indication: BONE CANCER
     Route: 048
     Dates: start: 20130728, end: 20130919
  2. SULFAMETHOXAZOLE (SULFAMETHOXAZOLE) [Concomitant]
  3. DEXAMETHASONE (DEXAMETHASONE) [Concomitant]
  4. LEDYRXINE (LEDYRXINE) [Concomitant]
  5. OXYCODONE (OXYCODONE) [Concomitant]
  6. LUNESTA (ESZOPICLONE) [Concomitant]
  7. NEURONTIN (GABAPENTIN) [Concomitant]

REACTIONS (2)
  - Headache [None]
  - Off label use [None]
